FAERS Safety Report 14135077 (Version 2)
Quarter: 2017Q4

REPORT INFORMATION
  Report Type: Report from Study
  Country: BR (occurrence: BR)
  Receive Date: 20171027
  Receipt Date: 20171108
  Transmission Date: 20180321
  Serious: Yes (Hospitalization, Other)
  Sender: FDA-Public Use
  Company Number: PHHY2017BR156597

PATIENT
  Sex: Female
  Weight: 100 kg

DRUGS (6)
  1. PANTOPRAZOLE SODIUM SESQUIHYDRATE [Concomitant]
     Active Substance: PANTOPRAZOLE SODIUM
     Indication: OESOPHAGITIS
     Dosage: 40 MG, QD (FROM 10 YEARS AGO)
     Route: 048
  2. FORASEQ [Suspect]
     Active Substance: BUDESONIDE\FORMOTEROL FUMARATE
     Indication: ALLERGIC BRONCHITIS
  3. CLENIL A [Concomitant]
     Active Substance: BECLOMETHASONE DIPROPIONATE
     Indication: BRONCHITIS
     Route: 055
  4. PANTOPRAZOLE SODIUM SESQUIHYDRATE [Concomitant]
     Active Substance: PANTOPRAZOLE SODIUM
     Indication: GASTRITIS
  5. FORASEQ [Suspect]
     Active Substance: BUDESONIDE\FORMOTEROL FUMARATE
     Indication: ASTHMA
     Dosage: 4 DF (BUDESONIDE 400 UG, FORMETEROL FUMARATE 12 UG), QD
     Route: 055
  6. AEROLIN [Concomitant]
     Active Substance: ALBUTEROL
     Indication: BRONCHITIS
     Route: 055

REACTIONS (7)
  - Hypertension [Recovering/Resolving]
  - Thrombosis [Recovered/Resolved]
  - Osteoarthritis [Recovering/Resolving]
  - Tremor [Recovering/Resolving]
  - Scar [Not Recovered/Not Resolved]
  - Panic disorder [Not Recovered/Not Resolved]
  - Pulmonary embolism [Recovered/Resolved]
